FAERS Safety Report 7771850-9 (Version None)
Quarter: 2011Q3

REPORT INFORMATION
  Report Type: 
  Country: None (occurrence: None)
  Receive Date: 20110922
  Receipt Date: 20100826
  Transmission Date: 20111222
  Serious: No
  Sender: FDA-Public Use
  Company Number: US-ASTRAZENECA-2010SE40353

PATIENT
  Age: 78 Year
  Sex: Female

DRUGS (1)
  1. SEROQUEL [Suspect]
     Dosage: HS
     Route: 048

REACTIONS (1)
  - DRUG SCREEN POSITIVE [None]
